FAERS Safety Report 6517885-5 (Version None)
Quarter: 2009Q4

REPORT INFORMATION
  Report Type: 
  Country: None (occurrence: None)
  Receive Date: 20091224
  Receipt Date: 20091214
  Transmission Date: 20100525
  Serious: Yes (Death)
  Sender: FDA-Public Use
  Company Number: RU-GENENTECH-294414

PATIENT
  Sex: Female

DRUGS (8)
  1. MABTHERA [Suspect]
     Indication: NON-HODGKIN'S LYMPHOMA
     Dosage: 700 MG, SINGLE
     Route: 042
     Dates: start: 20091109, end: 20091109
  2. CYCLOPHOSPHAMIDE [Concomitant]
     Indication: NON-HODGKIN'S LYMPHOMA
     Dosage: 400 MG, SINGLE
     Route: 042
     Dates: start: 20091109, end: 20091109
  3. VINCRISTINE [Concomitant]
     Indication: DRUG USE FOR UNKNOWN INDICATION
     Dosage: UNK
  4. PREDNISONE TAB [Concomitant]
     Indication: DRUG USE FOR UNKNOWN INDICATION
     Dosage: UNK
  5. FLUDARABINE [Concomitant]
     Indication: NON-HODGKIN'S LYMPHOMA
     Dosage: 50 MG, SINGLE
     Route: 042
     Dates: start: 20091109, end: 20091109
  6. METOCLOPRAMIDE [Concomitant]
     Indication: DRUG USE FOR UNKNOWN INDICATION
     Dosage: 2 G, SINGLE
     Route: 042
     Dates: start: 20091109, end: 20091109
  7. CHLOROPYRAMINE [Concomitant]
     Indication: DRUG USE FOR UNKNOWN INDICATION
     Dosage: 2 ML, SINGLE
     Route: 030
     Dates: start: 20091109, end: 20091109
  8. DEXAMETHASONE TAB [Concomitant]
     Indication: DRUG USE FOR UNKNOWN INDICATION
     Dosage: 12 MG, SINGLE
     Route: 030
     Dates: start: 20091109, end: 20091109

REACTIONS (5)
  - BACK PAIN [None]
  - GASTROINTESTINAL EROSION [None]
  - GASTROINTESTINAL HAEMORRHAGE [None]
  - HYPOTENSION [None]
  - PULMONARY EMBOLISM [None]
